FAERS Safety Report 5175372-3 (Version None)
Quarter: 2006Q4

REPORT INFORMATION
  Report Type: 
  Country: None (occurrence: None)
  Receive Date: 20061212
  Receipt Date: 20061212
  Transmission Date: 20070319
  Serious: Yes (Life-Threatening, Hospitalization, Other)
  Sender: FDA-Public Use
  Company Number: None

PATIENT
  Age: 59 Year
  Sex: Male

DRUGS (2)
  1. SIMVASTATIN [Suspect]
     Indication: HYPERLIPIDAEMIA
     Dosage: 80MG  QD  PO
     Route: 048
     Dates: start: 20060814, end: 20060906
  2. GEMFIBROZIL [Suspect]
     Dosage: 600MG  BID  PO
     Route: 048
     Dates: start: 20060131

REACTIONS (3)
  - HEPATIC ENZYME INCREASED [None]
  - MYALGIA [None]
  - MYOSITIS [None]
